FAERS Safety Report 8421559-3 (Version None)
Quarter: 2012Q2

REPORT INFORMATION
  Report Type: 
  Country: None (occurrence: None)
  Receive Date: 20120608
  Receipt Date: 20120530
  Transmission Date: 20120825
  Serious: Yes (Hospitalization)
  Sender: FDA-Public Use
  Company Number: FR-NAPPMUNDI-GBR-2012-0010714

PATIENT
  Sex: Female

DRUGS (6)
  1. OXYCODONE HYDROCHLORIDE [Suspect]
     Indication: PRODUCT USED FOR UNKNOWN INDICATION
     Dosage: 5 MG, DAILY
     Route: 048
     Dates: start: 20120304, end: 20120307
  2. DEBRIDAT                           /00465201/ [Concomitant]
     Dosage: 40 MG, DAILY
     Route: 048
     Dates: start: 20120302, end: 20120307
  3. PANTOPRAZOLE [Suspect]
     Indication: PRODUCT USED FOR UNKNOWN INDICATION
     Dosage: 80 MG, DAILY
     Route: 042
     Dates: start: 20120304, end: 20120308
  4. SPASFON                            /00765801/ [Concomitant]
     Dosage: 2 ML, TID
     Route: 042
     Dates: start: 20120302
  5. LOVENOX [Concomitant]
     Dosage: 4000UI/0.4ML DAILY
     Route: 058
     Dates: start: 20120222
  6. ACETAMINOPHEN [Concomitant]
     Dosage: 1 GRAM, TID
     Route: 042
     Dates: start: 20120229

REACTIONS (1)
  - LEUKOPENIA [None]
